FAERS Safety Report 6160590-8 (Version None)
Quarter: 2009Q2

REPORT INFORMATION
  Report Type: 
  Country: None (occurrence: None)
  Receive Date: 20090420
  Receipt Date: 20090408
  Transmission Date: 20091009
  Serious: Yes (Disabling, Other)
  Sender: FDA-Public Use
  Company Number: CA-BAYER-200911105BCC

PATIENT
  Sex: Male

DRUGS (6)
  1. ASPIRIN [Suspect]
     Indication: DRUG USE FOR UNKNOWN INDICATION
  2. APO-RISPERIDONE [Suspect]
     Indication: DRUG USE FOR UNKNOWN INDICATION
  3. APO-RISPERIDONE [Suspect]
  4. APO-RISPERIDONE [Suspect]
     Dosage: TOTAL DAILY DOSE: 6 MG  UNIT DOSE: 6 MG
  5. APO-RISPERIDONE [Suspect]
     Dosage: TOTAL DAILY DOSE: 4 MG  UNIT DOSE: 4 MG
  6. CALCIUM [Concomitant]

REACTIONS (10)
  - BLOOD GLUCOSE INCREASED [None]
  - DIZZINESS [None]
  - DYSPHAGIA [None]
  - EYE MOVEMENT DISORDER [None]
  - GAIT DISTURBANCE [None]
  - LOWER RESPIRATORY TRACT INFECTION [None]
  - SOMNOLENCE [None]
  - TREMOR [None]
  - URINARY TRACT INFECTION [None]
  - WEIGHT INCREASED [None]
